FAERS Safety Report 9810682 (Version 1)
Quarter: 2014Q1

REPORT INFORMATION
  Report Type: Spontaneous
  Country: US (occurrence: US)
  Receive Date: 20140110
  Receipt Date: 20140110
  Transmission Date: 20141002
  Serious: Yes (Hospitalization)
  Sender: FDA-Public Use
  Company Number: US-SANOFI-AVENTIS-2012SA033097

PATIENT
  Age: 64 Year
  Sex: Male

DRUGS (29)
  1. PLAVIX [Suspect]
  2. INVESTIGATIONAL DRUG [Concomitant]
     Dates: start: 20101103, end: 20110220
  3. LANTUS [Concomitant]
     Indication: TYPE 2 DIABETES MELLITUS
  4. METFORMIN [Concomitant]
     Indication: TYPE 2 DIABETES MELLITUS
  5. LASIX [Concomitant]
     Dates: start: 20110217, end: 20110217
  6. LASIX [Concomitant]
     Dates: start: 20101109, end: 20101124
  7. LASIX [Concomitant]
     Dates: start: 20110218
  8. LASIX [Concomitant]
     Dates: start: 20111008, end: 20111008
  9. SIMETHICONE [Concomitant]
     Dosage: DOSE:2 UNIT(S)
     Dates: start: 20110223
  10. CARAFATE [Concomitant]
     Dates: start: 20110226
  11. VERSED [Concomitant]
     Dates: start: 20110225, end: 20110225
  12. VERSED [Concomitant]
     Dates: start: 20110301, end: 20110301
  13. FENTANYL [Concomitant]
     Dates: start: 20110301, end: 20110301
  14. BUMEX [Concomitant]
     Dates: start: 20110331, end: 20110331
  15. BUMEX [Concomitant]
     Dates: start: 20110401, end: 20110403
  16. AVASTIN [Concomitant]
     Dates: start: 20110623, end: 20110623
  17. ALCAINE [Concomitant]
     Dates: start: 20110630, end: 20110630
  18. VIGAMOX [Concomitant]
     Dates: start: 20110623, end: 20110623
  19. SPIRONOLACTONE [Concomitant]
     Dates: start: 20111008
  20. BACTRIM DS [Concomitant]
     Dates: start: 20120223
  21. DIURETICS [Concomitant]
     Dates: start: 20101103
  22. BETA BLOCKING AGENTS [Concomitant]
     Dates: start: 20101103
  23. ASPIRIN [Concomitant]
     Dates: start: 20101103
  24. PLATELET AGGREGATION INHIBITORS [Concomitant]
     Dates: start: 20101103
  25. PLATELET AGGREGATION INHIBITORS [Concomitant]
     Dates: start: 20101103
  26. ALPHA-ADRENOCEPTOR BLOCKING AGENTS [Concomitant]
     Dates: start: 20101103
  27. ACE INHIBITOR NOS [Concomitant]
     Dates: start: 20101103
  28. CHOLESTEROL- AND TRIGLYCERIDE REDUCERS [Concomitant]
     Dates: start: 20101103
  29. CALCIUM CHANNEL BLOCKERS [Concomitant]
     Dates: start: 20110419

REACTIONS (1)
  - Haematuria [Recovered/Resolved]
